FAERS Safety Report 7423106-1 (Version None)
Quarter: 2011Q2

REPORT INFORMATION
  Report Type: 
  Country: None (occurrence: None)
  Receive Date: 20110411
  Receipt Date: 20110331
  Transmission Date: 20111010
  Serious: Yes (Disabling)
  Sender: FDA-Public Use
  Company Number: 878534

PATIENT
  Age: 54 Year
  Sex: Female

DRUGS (2)
  1. (THERAPEUTIC RADIOPHARMACEUTICALS) [Suspect]
     Indication: CENTRAL NERVOUS SYSTEM LYMPHOMA
     Dosage: 40 GY IN 2.0-GY FRACTIONS,
  2. METHOTREXATE [Suspect]
     Indication: CENTRAL NERVOUS SYSTEM LYMPHOMA
     Dosage: 3.5 G/M^2 FOR SIX CYCLES EVERY 14 DAYS, INTRAVENOUS
     Route: 042

REACTIONS (9)
  - CEREBRAL ATROPHY [None]
  - LEUKOENCEPHALOPATHY [None]
  - HEMIPARESIS [None]
  - STEM CELL TRANSPLANT [None]
  - NEOPLASM RECURRENCE [None]
  - PARKINSONISM [None]
  - CEREBRAL VENTRICLE DILATATION [None]
  - RADIATION INJURY [None]
  - NEUROTOXICITY [None]
